FAERS Safety Report 7719408-1 (Version None)
Quarter: 2011Q3

REPORT INFORMATION
  Report Type: 
  Country: None (occurrence: None)
  Receive Date: 20110830
  Receipt Date: 20110823
  Transmission Date: 20111222
  Serious: Yes (Hospitalization)
  Sender: FDA-Public Use
  Company Number: PHHO2011NL14260

PATIENT
  Sex: Female
  Weight: 58 kg

DRUGS (2)
  1. SANDIMMUNE [Suspect]
     Indication: GRAFT VERSUS HOST DISEASE
     Dosage: 550 MG, UNK
     Route: 048
     Dates: start: 20110109
  2. MYCOPHENOLIC ACID [Suspect]
     Indication: GRAFT VERSUS HOST DISEASE
     Dosage: 1800 MG, UNK
     Route: 048
     Dates: start: 20110112

REACTIONS (1)
  - MIGRAINE [None]
